FAERS Safety Report 23703529 (Version 1)
Quarter: 2024Q2

REPORT INFORMATION
  Report Type: Spontaneous
  Country: US (occurrence: US)
  Receive Date: 20240403
  Receipt Date: 20240403
  Transmission Date: 20240716
  Serious: Yes (Other)
  Sender: FDA-Public Use
  Company Number: US-PURDUE-USA-2024-0308734

PATIENT
  Age: 5 Week
  Sex: Female

DRUGS (1)
  1. DRONABINOL [Suspect]
     Active Substance: DRONABINOL
     Indication: Product used for unknown indication
     Dosage: UNK
     Route: 065

REACTIONS (4)
  - Apnoea [Recovered/Resolved]
  - Foetal exposure during pregnancy [Unknown]
  - Respiratory tract congestion [Recovered/Resolved]
  - Drug screen positive [Unknown]
